FAERS Safety Report 21879598 (Version 2)
Quarter: 2023Q1

REPORT INFORMATION
  Report Type: Spontaneous
  Country: DE (occurrence: DE)
  Receive Date: 20230118
  Receipt Date: 20230203
  Transmission Date: 20230418
  Serious: Yes (Death, Other)
  Sender: FDA-Public Use
  Company Number: DE-ADIENNEP-2022AD001106

PATIENT
  Age: 58 Year
  Sex: Female

DRUGS (11)
  1. THIOTEPA [Suspect]
     Active Substance: THIOTEPA
     Indication: Autologous haematopoietic stem cell transplant
     Dosage: UNK (1 X R-TT/ARAC)
     Route: 065
  2. THIOTEPA [Suspect]
     Active Substance: THIOTEPA
     Indication: Chemotherapy
     Dosage: 5 MG/KG (2X5 MG/KG/DAY FOR 2 DAYS (DAYS 3 AND 4)- (FREQUENCY-0.5 DAY)
     Route: 042
  3. THIOTEPA [Suspect]
     Active Substance: THIOTEPA
     Dosage: 40 MG/M2
     Route: 065
  4. THIOTEPA [Suspect]
     Active Substance: THIOTEPA
     Dosage: 10 MG
     Route: 065
  5. RITUXIMAB [Suspect]
     Active Substance: RITUXIMAB
     Indication: Autologous haematopoietic stem cell transplant
     Dosage: 375 MG/M2 (DAY 1)
     Route: 042
  6. RITUXIMAB [Suspect]
     Active Substance: RITUXIMAB
     Indication: Chemotherapy
  7. AZATHIOPRINE [Suspect]
     Active Substance: AZATHIOPRINE
     Indication: Granulomatosis with polyangiitis
     Dosage: 400 MG/M2 (DAY 2)
     Route: 065
  8. METHOTREXATE [Suspect]
     Active Substance: METHOTREXATE
     Indication: Prophylaxis against transplant rejection
     Dosage: UNK
     Route: 065
  9. CYTARABINE [Suspect]
     Active Substance: CYTARABINE
     Indication: Autologous haematopoietic stem cell transplant
     Dosage: 3000 MG/M2 (1 X R-TT/ARAC)
     Route: 065
  10. CYTARABINE [Suspect]
     Active Substance: CYTARABINE
     Indication: Chemotherapy
  11. CARMUSTINE [Suspect]
     Active Substance: CARMUSTINE
     Indication: Autologous haematopoietic stem cell transplant
     Dosage: 400 MG/M2 (DAY 2)
     Route: 042

REACTIONS (3)
  - Disease progression [Fatal]
  - Infection [Unknown]
  - Off label use [Unknown]
